FAERS Safety Report 4878864-7 (Version None)
Quarter: 2006Q1

REPORT INFORMATION
  Report Type: 
  Country: None (occurrence: None)
  Receive Date: 20060110
  Receipt Date: 20060110
  Transmission Date: 20060701
  Serious: Yes (Other)
  Sender: FDA-Public Use
  Company Number: None

PATIENT
  Age: 19 Year
  Sex: Female
  Weight: 57.6068 kg

DRUGS (2)
  1. DEPO-PROVERA [Suspect]
     Indication: CONTRACEPTION
     Dosage: 150 MG IM DELTOID
     Route: 042
     Dates: start: 20050110
  2. DEPO-PROVERA [Suspect]

REACTIONS (1)
  - PREGNANCY WITH INJECTABLE CONTRACEPTIVE [None]
